FAERS Safety Report 6863630-3 (Version None)
Quarter: 2010Q3

REPORT INFORMATION
  Report Type: 
  Country: None (occurrence: None)
  Receive Date: 20100721
  Receipt Date: 20100714
  Transmission Date: 20110219
  Serious: Yes (Hospitalization)
  Sender: FDA-Public Use
  Company Number: US-AMGEN-QUU424763

PATIENT
  Sex: Female

DRUGS (17)
  1. NPLATE [Suspect]
     Indication: IDIOPATHIC THROMBOCYTOPENIC PURPURA
     Route: 058
     Dates: start: 20090401
  2. CORTICOSTEROIDS [Concomitant]
     Dates: start: 20090308
  3. IMMU-G [Concomitant]
     Dates: start: 20040330
  4. DECADRON [Concomitant]
     Route: 042
  5. TYLENOL [Concomitant]
  6. COMBIVENT [Concomitant]
  7. CYMBALTA [Concomitant]
  8. AMARYL [Concomitant]
  9. ADVAIR DISKUS 100/50 [Concomitant]
  10. METFORMIN [Concomitant]
  11. LOPRESSOR [Concomitant]
  12. NYSTATIN [Concomitant]
  13. NEXIUM [Concomitant]
  14. LYRICA [Concomitant]
  15. VICODIN [Concomitant]
  16. PNEUMOVAX 23 [Concomitant]
  17. INFLUENZA VACCINE [Concomitant]

REACTIONS (11)
  - ASTHENIA [None]
  - ATRIAL FIBRILLATION [None]
  - BACTERIAL DISEASE CARRIER [None]
  - DEPRESSION [None]
  - DYSLIPIDAEMIA [None]
  - GASTROOESOPHAGEAL REFLUX DISEASE [None]
  - HAEMORRHAGIC ANAEMIA [None]
  - HYPOKALAEMIA [None]
  - ILEUS [None]
  - LEUKOCYTOSIS [None]
  - SKIN CANDIDA [None]
